FAERS Safety Report 5274280-7 (Version None)
Quarter: 2007Q1

REPORT INFORMATION
  Report Type: 
  Country: None (occurrence: None)
  Receive Date: 20070323
  Receipt Date: 20070312
  Transmission Date: 20070707
  Serious: Yes (Other)
  Sender: FDA-Public Use
  Company Number: GB-JNJFOC-20070303250

PATIENT
  Age: 47 Year
  Sex: Male

DRUGS (3)
  1. TOPAMAX [Suspect]
     Indication: EPILEPSY
     Route: 065
  2. VALPROATE SODIUM [Concomitant]
  3. LAMOTRIGINE [Concomitant]

REACTIONS (3)
  - FEEDING DISORDER [None]
  - SPEECH DISORDER [None]
  - WEIGHT DECREASED [None]
